FAERS Safety Report 6704180-4 (Version None)
Quarter: 2010Q2

REPORT INFORMATION
  Report Type: 
  Country: None (occurrence: None)
  Receive Date: 20100428
  Receipt Date: 20100413
  Transmission Date: 20101027
  Serious: Yes (Death, Hospitalization, Other)
  Sender: FDA-Public Use
  Company Number: JP-JNJFOC-20090603475

PATIENT
  Age: 72 Year
  Sex: Male

DRUGS (33)
  1. DECITABINE            (DECITABINE) LYOPHILIZED POWDER [Suspect]
     Indication: MYELODYSPLASTIC SYNDROME
     Dosage: 32.5 MG, 1 IN 1 DAY, INTRAVENOUS
     Route: 042
     Dates: start: 20090427, end: 20090501
  2. DECITABINE            (DECITABINE) LYOPHILIZED POWDER [Suspect]
     Indication: MYELODYSPLASTIC SYNDROME
     Dosage: 32.5 MG, 1 IN 1 DAY, INTRAVENOUS
     Route: 042
     Dates: start: 20090527, end: 20090531
  3. SOLU-MEDROL [Concomitant]
  4. MS ONSHIPPU (DUYUNGSON) TRANSDERMAL SYSTEM [Concomitant]
  5. BLOPRESS (CANDESARTAN CILEXETIL) TABLET [Concomitant]
  6. ATELEC (CILNIDIPINE) TABLET [Concomitant]
  7. CARVEDILOL [Concomitant]
  8. MAGNESIUM OXIDE (MAGNESIUM OXIDE) [Concomitant]
  9. SOLU-CORTEF [Concomitant]
  10. CHLORTRIMETON (CHLORPHENAMINE MALEATE) INJECTION [Concomitant]
  11. ZOLPIDEM TARTRATE [Concomitant]
  12. CALONAL (PARACETAMOL) TABLET [Concomitant]
  13. TOBRAMYCIN [Concomitant]
  14. SOLDEM 1 (SOLITA-T1) INJECTION [Concomitant]
  15. ADONA (CARBAZOCHROME SODIUM SULFONATE) INJECTION [Concomitant]
  16. TRANSAMIN (TRANEXAMIC ACID) INJECTION [Concomitant]
  17. AMBISOME [Concomitant]
  18. CEFTAZIDIME (CEFTAZIDIME) INJECTION [Concomitant]
  19. PLATELETS (PLATELETS) INJECTION [Concomitant]
  20. RED BLOOD CELLS [Concomitant]
  21. SALIPHARA CODEINE (SALIPARA CODEINE) LIQUID [Concomitant]
  22. MEDICON (DEXTROMETHORPHAN HYDROBROMIDE) POWDER [Concomitant]
  23. LANSOPRAZOLE [Concomitant]
  24. BAKTAR (BACTRIM TABLET [Concomitant]
  25. POTASSIUM CHLORIDE (POTASSIUM CHLORIDE) INJECTION [Concomitant]
  26. FULCALIQ 1 (FULCALIQ) INJECTION [Concomitant]
  27. FLAGYL [Concomitant]
  28. ELEMENMIC (ELEMEAL) INJECTION [Concomitant]
  29. LASIX (FUROSEMIDE) INJECTION [Concomitant]
  30. BUSCOPAN (HYOSCINE BUTYLBROMIDE) INJECTION [Concomitant]
  31. PREDNISOLONE [Concomitant]
  32. CALONAL (PARACETAMOL) TABLET [Concomitant]
  33. PRIMPERAN (METOCLOPRAMIDE) INJECTION [Concomitant]

REACTIONS (15)
  - BRAIN OEDEMA [None]
  - CEREBRAL INFARCTION [None]
  - CLOSTRIDIUM TEST POSITIVE [None]
  - DELIRIUM [None]
  - DIARRHOEA [None]
  - DISSEMINATED INTRAVASCULAR COAGULATION [None]
  - FUNGAL INFECTION [None]
  - HEART RATE DECREASED [None]
  - LACUNAR INFARCTION [None]
  - PNEUMONIA [None]
  - PNEUMONIA ASPIRATION [None]
  - PSEUDOBULBAR PALSY [None]
  - PSEUDOMEMBRANOUS COLITIS [None]
  - PULMONARY ALVEOLAR HAEMORRHAGE [None]
  - RESPIRATORY ARREST [None]
